FAERS Safety Report 14101844 (Version 4)
Quarter: 2018Q4

REPORT INFORMATION
  Report Type: Spontaneous
  Country: US (occurrence: US)
  Receive Date: 20171018
  Receipt Date: 20181020
  Transmission Date: 20190204
  Serious: Yes (Hospitalization, Other)
  Sender: FDA-Public Use
  Company Number: US-STRIDES ARCOLAB LIMITED-2017SP013527

PATIENT
  Age: 56 Year
  Sex: Female

DRUGS (4)
  1. VANCOMYCIN [Suspect]
     Active Substance: VANCOMYCIN
     Indication: ENDOCARDITIS
     Dosage: UNK
     Route: 065
  2. GENTAMYCIN                         /00047101/ [Interacting]
     Active Substance: GENTAMICIN
     Indication: ENDOCARDITIS
     Dosage: UNKNOWN
     Route: 065
  3. VANCOMYCIN [Suspect]
     Active Substance: VANCOMYCIN
     Dosage: UNK
     Route: 065
  4. RIFAMPICIN [Interacting]
     Active Substance: RIFAMPIN
     Indication: ENDOCARDITIS
     Dosage: UNKNOWN
     Route: 065

REACTIONS (2)
  - Renal tubular necrosis [Recovered/Resolved]
  - Acute kidney injury [Recovered/Resolved]
